FAERS Safety Report 12526687 (Version 3)
Quarter: 2018Q2

REPORT INFORMATION
  Report Type: Spontaneous
  Country: AU (occurrence: AU)
  Receive Date: 20160705
  Receipt Date: 20180622
  Transmission Date: 20180711
  Serious: Yes (Hospitalization, Other)
  Sender: FDA-Public Use
  Company Number: AU-SUN PHARMACEUTICAL INDUSTRIES LTD-2016RR-119658

PATIENT
  Age: 73 Year
  Sex: Male

DRUGS (4)
  1. FLUCLOXACILLIN [Suspect]
     Active Substance: FLUCLOXACILLIN
     Indication: STAPHYLOCOCCAL INFECTION
     Dosage: 2 G, QID
     Route: 042
  2. PARACETAMOL [Suspect]
     Active Substance: ACETAMINOPHEN
     Indication: PAIN
     Dosage: 1 G, TID
     Route: 065
  3. CIPROFLOXACIN. [Concomitant]
     Active Substance: CIPROFLOXACIN
     Indication: URINARY TRACT INFECTION BACTERIAL
     Dosage: 2-WEEK COURSE
     Route: 048
  4. FLUCLOXACILLIN [Suspect]
     Active Substance: FLUCLOXACILLIN
     Indication: ENDOCARDITIS
     Dosage: HIGH-DOSE
     Route: 042

REACTIONS (5)
  - Metabolic acidosis [Recovered/Resolved]
  - Pyroglutamate increased [Recovered/Resolved]
  - Somnolence [Recovered/Resolved]
  - Blood pH decreased [Recovered/Resolved]
  - Confusional state [Recovered/Resolved]
